FAERS Safety Report 10491355 (Version 1)
Quarter: 2014Q4

REPORT INFORMATION
  Report Type: Spontaneous
  Country: US (occurrence: US)
  Receive Date: 20141002
  Receipt Date: 20141002
  Transmission Date: 20150528
  Serious: No
  Sender: FDA-Public Use
  Company Number: US-GLAXOSMITHKLINE-A1051700A

PATIENT
  Age: 80 Year
  Sex: Female

DRUGS (8)
  1. LOVASTATIN. [Concomitant]
     Active Substance: LOVASTATIN
  2. ALPRAZOLAM. [Concomitant]
     Active Substance: ALPRAZOLAM
  3. UNKNOWN [Concomitant]
     Active Substance: UNSPECIFIED INGREDIENT
  4. ALBUTEROL. [Concomitant]
     Active Substance: ALBUTEROL
  5. TRAZODONE [Concomitant]
     Active Substance: TRAZODONE HYDROCHLORIDE
  6. K-TAB [Concomitant]
     Active Substance: POTASSIUM CHLORIDE
  7. SPIRIVA [Concomitant]
     Active Substance: TIOTROPIUM BROMIDE MONOHYDRATE
  8. ADVAIR HFA [Suspect]
     Active Substance: FLUTICASONE PROPIONATE\SALMETEROL XINAFOATE
     Indication: CHRONIC OBSTRUCTIVE PULMONARY DISEASE
     Dosage: 1PUFF TWICE PER DAY
     Route: 065

REACTIONS (6)
  - Drug ineffective [Unknown]
  - Dyspnoea [Unknown]
  - Feeling cold [Unknown]
  - Inhalation therapy [Not Recovered/Not Resolved]
  - Product quality issue [Unknown]
  - Wheezing [Unknown]

NARRATIVE: CASE EVENT DATE: 20131114
